FAERS Safety Report 5536964-2 (Version None)
Quarter: 2007Q4

REPORT INFORMATION
  Report Type: 
  Country: None (occurrence: None)
  Receive Date: 20071207
  Receipt Date: 20071126
  Transmission Date: 20080405
  Serious: Yes (Life-Threatening, Hospitalization)
  Sender: FDA-Public Use
  Company Number: US-BAYER-US-2007-042879

PATIENT
  Age: 70 Year
  Sex: Female
  Weight: 117 kg

DRUGS (1)
  1. MAGNEVIST [Suspect]
     Indication: NUCLEAR MAGNETIC RESONANCE IMAGING BRAIN
     Dosage: UNIT DOSE: 15 ML
     Route: 042
     Dates: start: 20071109, end: 20071109

REACTIONS (3)
  - ASPIRATION [None]
  - CARDIO-RESPIRATORY ARREST [None]
  - SKIN DISCOLOURATION [None]
